FAERS Safety Report 4291233-6 (Version None)
Quarter: 2004Q1

REPORT INFORMATION
  Report Type: 
  Country: None (occurrence: None)
  Receive Date: 20040211
  Receipt Date: 20031118
  Transmission Date: 20041129
  Serious: No
  Sender: FDA-Public Use
  Company Number: US-GLAXOSMITHKLINE-A0440185A

PATIENT
  Age: 13 Year
  Sex: Female

DRUGS (4)
  1. PAXIL [Suspect]
     Indication: DEPRESSION
     Dosage: 20MG PER DAY
     Route: 048
     Dates: start: 20031027, end: 20031117
  2. AUGMENTIN [Concomitant]
  3. CLARITIN [Concomitant]
  4. BENADRYL [Concomitant]

REACTIONS (9)
  - BONE PAIN [None]
  - CHILLS [None]
  - EYE PAIN [None]
  - FATIGUE [None]
  - HOT FLUSH [None]
  - PAIN IN JAW [None]
  - PHARYNGOLARYNGEAL PAIN [None]
  - PYREXIA [None]
  - TYPE IV HYPERSENSITIVITY REACTION [None]
